FAERS Safety Report 7604415-X (Version None)
Quarter: 2011Q3

REPORT INFORMATION
  Report Type: 
  Country: None (occurrence: None)
  Receive Date: 20110712
  Receipt Date: 20110627
  Transmission Date: 20111222
  Serious: No
  Sender: FDA-Public Use
  Company Number: US-B.I. PHARMACEUTICALS,INC./RIDGEFIELD-2011-BP-16449BP

PATIENT
  Sex: Female

DRUGS (5)
  1. ARIMIDEX [Concomitant]
     Indication: BREAST CANCER
     Dosage: 1 MG
     Route: 048
     Dates: start: 20101201
  2. ARIMIDEX [Concomitant]
     Indication: MASTECTOMY
  3. PRADAXA [Suspect]
     Indication: ATRIAL FIBRILLATION
     Dosage: 300 MG
     Route: 048
     Dates: start: 20110520
  4. TYLENOL-500 [Concomitant]
     Indication: ARTHRITIS
     Route: 048
     Dates: start: 19900101
  5. METOPROLOL TARTRATE [Concomitant]
     Indication: HYPERTENSION
     Route: 048
     Dates: start: 20070101

REACTIONS (3)
  - DIZZINESS [None]
  - NECK PAIN [None]
  - MUSCULAR WEAKNESS [None]
